FAERS Safety Report 20709779 (Version 2)
Quarter: 2022Q2

REPORT INFORMATION
  Report Type: Report from Study
  Country: CA (occurrence: None)
  Receive Date: 20220414
  Receipt Date: 20220421
  Transmission Date: 20220721
  Serious: Yes (Other)
  Sender: FDA-Public Use
  Company Number: CA-ROCHE-3070962

PATIENT
  Age: 42 Year
  Sex: Male
  Weight: 77.9 kg

DRUGS (13)
  1. CEVOSTAMAB [Suspect]
     Active Substance: CEVOSTAMAB
     Indication: Plasma cell myeloma
     Dosage: START DATE OF MOST RECENT DOSE OF STUDY DRUG?PRIOR TO SAE: 01-APR-2022
     Route: 042
     Dates: start: 20220302
  2. TOCILIZUMAB [Suspect]
     Active Substance: TOCILIZUMAB
     Indication: Plasma cell myeloma
     Route: 042
     Dates: start: 20220304
  3. XARELTO [Concomitant]
     Active Substance: RIVAROXABAN
  4. VANCOMYCIN [Concomitant]
     Active Substance: VANCOMYCIN
  5. TYLENOL [Concomitant]
     Active Substance: ACETAMINOPHEN
  6. POTASSIUM PHOSPHATE [Concomitant]
     Active Substance: POTASSIUM PHOSPHATE
  7. METOCLOPRAMIDE HYDROCHLORIDE [Concomitant]
     Active Substance: METOCLOPRAMIDE HYDROCHLORIDE
  8. MAGNESIUM SULFATE [Concomitant]
     Active Substance: MAGNESIUM SULFATE
  9. GRAVOL [Concomitant]
     Active Substance: DIMENHYDRINATE
  10. FILGRASTIM [Concomitant]
     Active Substance: FILGRASTIM
  11. FENTANYL [Concomitant]
     Active Substance: FENTANYL
  12. ACYCLOVIR [Concomitant]
     Active Substance: ACYCLOVIR
  13. SODIUM CHLORIDE [Concomitant]
     Active Substance: SODIUM CHLORIDE
     Route: 042
     Dates: start: 20220303, end: 20220304

REACTIONS (1)
  - Pyrexia [Not Recovered/Not Resolved]

NARRATIVE: CASE EVENT DATE: 20220401
